FAERS Safety Report 21170212 (Version 2)
Quarter: 2022Q4

REPORT INFORMATION
  Report Type: Spontaneous
  Country: ZA (occurrence: ZA)
  Receive Date: 20220804
  Receipt Date: 20221004
  Transmission Date: 20230113
  Serious: No
  Sender: FDA-Public Use
  Company Number: ZA-ALLERGAN-2224553US

PATIENT
  Sex: Male

DRUGS (1)
  1. OZURDEX [Suspect]
     Active Substance: DEXAMETHASONE
     Indication: Macular degeneration
     Dosage: 0.7 MG, SINGLE
     Route: 031
     Dates: start: 202012, end: 202012

REACTIONS (1)
  - Off label use [Unknown]
